FAERS Safety Report 4651543-7 (Version None)
Quarter: 2005Q2

REPORT INFORMATION
  Report Type: 
  Country: None (occurrence: None)
  Receive Date: 20050503
  Receipt Date: 20050422
  Transmission Date: 20051028
  Serious: Yes (Hospitalization)
  Sender: FDA-Public Use
  Company Number: FR-MERCK-0504FRA00091

PATIENT
  Age: 58 Year
  Sex: Female
  Weight: 95 kg

DRUGS (8)
  1. PRIMAXIN [Suspect]
     Indication: INFECTIVE MYOSITIS
     Route: 042
     Dates: start: 20050223, end: 20050313
  2. CIPROFLOXACIN [Suspect]
     Indication: INFECTIVE MYOSITIS
     Route: 042
     Dates: start: 20050223, end: 20050311
  3. FLUCONAZOLE [Suspect]
     Indication: INFECTIVE MYOSITIS
     Route: 048
     Dates: start: 20050223, end: 20050310
  4. INSULIN [Concomitant]
     Indication: DIABETES MELLITUS
     Route: 058
  5. BROMAZEPAM [Concomitant]
     Indication: ANXIETY
     Route: 048
     Dates: start: 20050307, end: 20050308
  6. BROMAZEPAM [Concomitant]
     Route: 048
     Dates: start: 20050401
  7. ACETAMINOPHEN [Concomitant]
     Route: 048
     Dates: start: 20050305, end: 20050311
  8. ACETAMINOPHEN [Concomitant]
     Route: 048
     Dates: start: 20050401

REACTIONS (5)
  - EPIDERMAL NECROSIS [None]
  - PRURITUS GENERALISED [None]
  - PYREXIA [None]
  - RASH MACULAR [None]
  - RASH PUSTULAR [None]
